FAERS Safety Report 16074124 (Version 1)
Quarter: 2019Q1

REPORT INFORMATION
  Report Type: Spontaneous
  Country: TR (occurrence: TR)
  Receive Date: 20190314
  Receipt Date: 20190314
  Transmission Date: 20190418
  Serious: Yes (Death, Hospitalization, Other)
  Sender: FDA-Public Use
  Company Number: TR-TEVA-2019-TR-1024269

PATIENT
  Age: 70 Year
  Sex: Male

DRUGS (7)
  1. LEUKERAN [Concomitant]
     Active Substance: CHLORAMBUCIL
     Dosage: ONCE DAILY
     Route: 065
  2. R CVP [RITUXIMAB] [Suspect]
     Active Substance: RITUXIMAB
  3. R CVP [CYCLOPHOSPHAMIDE\PREDNISONE\VINCRISTINE] [Suspect]
     Active Substance: CYCLOPHOSPHAMIDE\PREDNISONE\VINCRISTINE
     Indication: CHRONIC LYMPHOCYTIC LEUKAEMIA
     Dosage: UNK UNK, CYCLIC (2 CYCLE, ONCE IN 3 WEEKS)
     Route: 065
  4. BENDAMUSTINE HYDROCHLORIDE. [Suspect]
     Active Substance: BENDAMUSTINE HYDROCHLORIDE
     Indication: CHRONIC LYMPHOCYTIC LEUKAEMIA
     Dosage: UNK UNK, CYCLIC
     Route: 042
  5. IBRUTINIB [Suspect]
     Active Substance: IBRUTINIB
     Indication: CHRONIC LYMPHOCYTIC LEUKAEMIA
     Dosage: UNK UNK, THRICE DAILY
     Route: 065
  6. RITUXIMAB. [Suspect]
     Active Substance: RITUXIMAB
     Indication: CHRONIC LYMPHOCYTIC LEUKAEMIA
     Dosage: UNK UNK, CYCLIC
     Route: 065
  7. LEUKERAN [Concomitant]
     Active Substance: CHLORAMBUCIL
     Indication: CHRONIC LYMPHOCYTIC LEUKAEMIA
     Dosage: UNK UNK, TWICE DAILY
     Route: 065

REACTIONS (5)
  - Pyrexia [Unknown]
  - Death [Fatal]
  - Infection [Unknown]
  - Therapy partial responder [Unknown]
  - Pneumonia [Unknown]

NARRATIVE: CASE EVENT DATE: 20130415
